FAERS Safety Report 15743973 (Version 1)
Quarter: 2018Q4

REPORT INFORMATION
  Report Type: Spontaneous
  Country: US (occurrence: US)
  Receive Date: 20181220
  Receipt Date: 20181220
  Transmission Date: 20190205
  Serious: No
  Sender: FDA-Public Use
  Company Number: US-HORIZON-PRO-0260-2018

PATIENT
  Age: 10 Year
  Sex: Female

DRUGS (1)
  1. PROCYSBI [Suspect]
     Active Substance: CYSTEAMINE BITARTRATE
     Indication: AMINO ACID METABOLISM DISORDER
     Dosage: 750 MG (10 X 75 MG CAPSULES) EVERY 12 HOURS
     Route: 048

REACTIONS (1)
  - Amino acid level increased [Not Recovered/Not Resolved]
